FAERS Safety Report 24754533 (Version 1)
Quarter: 2024Q4

REPORT INFORMATION
  Report Type: Spontaneous
  Country: US (occurrence: US)
  Receive Date: 20241219
  Receipt Date: 20241219
  Transmission Date: 20250114
  Serious: Yes (Hospitalization)
  Sender: JOHNSON AND JOHNSON
  Company Number: US-JNJFOC-20241230089

PATIENT
  Age: 75 Year
  Sex: Male

DRUGS (3)
  1. XARELTO [Suspect]
     Active Substance: RIVAROXABAN
     Indication: Atrial fibrillation
     Route: 048
  2. XARELTO [Suspect]
     Active Substance: RIVAROXABAN
     Indication: Cerebrovascular accident prophylaxis
  3. ASPIRIN [Concomitant]
     Active Substance: ASPIRIN

REACTIONS (2)
  - Spinal laminectomy [Unknown]
  - Foraminotomy [Unknown]

NARRATIVE: CASE EVENT DATE: 20241201
